FAERS Safety Report 18139404 (Version 3)
Quarter: 2021Q4

REPORT INFORMATION
  Report Type: Spontaneous
  Country: US (occurrence: US)
  Receive Date: 20200812
  Receipt Date: 20211122
  Transmission Date: 20220303
  Serious: Yes (Other)
  Sender: FDA-Public Use
  Company Number: US-MACLEODS PHARMACEUTICALS US LTD-MAC2020027610

PATIENT

DRUGS (1)
  1. OSELTAMIVIR [Suspect]
     Active Substance: OSELTAMIVIR
     Indication: Influenza
     Dosage: 75 MILLIGRAM, BID, WITH A PLAN OF 5 DAYS, HAD TAKEN 2 DOSES OF OSELTAMIVIR PRIOR TO THE MEDICATION B
     Route: 048

REACTIONS (2)
  - Blindness transient [Recovering/Resolving]
  - Acute macular neuroretinopathy [Recovering/Resolving]
